FAERS Safety Report 12697664 (Version 3)
Quarter: 2017Q1

REPORT INFORMATION
  Report Type: Report from Study
  Country: IE (occurrence: IE)
  Receive Date: 20160830
  Receipt Date: 20170109
  Transmission Date: 20170428
  Serious: Yes (Other)
  Sender: FDA-Public Use
  Company Number: PHFR2016IE006975

PATIENT
  Age: 75 Year
  Sex: Female

DRUGS (7)
  1. PRIADEL [Concomitant]
     Active Substance: LITHIUM CARBONATE
     Indication: DEPRESSION
     Dosage: 200 MG, BID
     Route: 048
     Dates: start: 20110120
  2. ZOPITAN [Concomitant]
     Indication: PRODUCT USED FOR UNKNOWN INDICATION
     Dosage: 7.5 MG, QHS
     Route: 048
     Dates: start: 20110120
  3. FLIXOTIDE [Concomitant]
     Active Substance: FLUTICASONE PROPIONATE
     Indication: CHRONIC OBSTRUCTIVE PULMONARY DISEASE
     Dosage: 250 UG, BID
     Route: 055
     Dates: start: 20120821
  4. ELTROXIN [Concomitant]
     Active Substance: LEVOTHYROXINE
     Indication: HYPOTHYROIDISM
     Dosage: 100UG / 50 UG ALTERNATE DAY
     Route: 048
     Dates: start: 20110120
  5. NEXIUM [Concomitant]
     Active Substance: ESOMEPRAZOLE MAGNESIUM
     Indication: GASTRIC PH DECREASED
     Dosage: 40 MG, QD
     Route: 048
     Dates: start: 20110120
  6. UNIPHYLLIN [Concomitant]
     Active Substance: THEOPHYLLINE ANHYDROUS
     Indication: CHRONIC OBSTRUCTIVE PULMONARY DISEASE
     Dosage: 200 MG, BID
     Route: 048
     Dates: start: 20110120
  7. ULTIBRO BREEZHALER [Suspect]
     Active Substance: GLYCOPYRRONIUM\INDACATEROL
     Indication: PRODUCT USED FOR UNKNOWN INDICATION
     Dosage: 1 DF, UNK
     Route: 055

REACTIONS (2)
  - Road traffic accident [Recovered/Resolved]
  - Osteoporosis [Recovering/Resolving]

NARRATIVE: CASE EVENT DATE: 20160128
